FAERS Safety Report 5251986-7 (Version None)
Quarter: 2007Q1

REPORT INFORMATION
  Report Type: 
  Country: None (occurrence: None)
  Receive Date: 20070226
  Receipt Date: 20070220
  Transmission Date: 20070707
  Serious: Yes (Death)
  Sender: FDA-Public Use
  Company Number: 2007SP003243

PATIENT
  Age: 67 Year
  Sex: Male

DRUGS (4)
  1. LONAFARNIB (S-P) (LONAFARNIB) [Suspect]
     Indication: GLIOMA
     Dosage: 175 MG;BID
     Dates: start: 20070112, end: 20070112
  2. LONAFARNIB (S-P) (LONAFARNIB) [Suspect]
     Indication: GLIOMA
     Dosage: 175 MG;BID
     Dates: start: 20061228
  3. TEMOZOLOMIDE (S-P) (TEMOZOLOMIDE) [Suspect]
     Indication: GLIOMA
     Dosage: 150 MG;QD
     Dates: start: 20070112, end: 20070112
  4. TEMOZOLOMIDE (S-P) (TEMOZOLOMIDE) [Suspect]
     Indication: GLIOMA
     Dosage: 150 MG;QD
     Dates: start: 20061228

REACTIONS (2)
  - BALANCE DISORDER [None]
  - SEPTIC SHOCK [None]
